FAERS Safety Report 4871497-8 (Version None)
Quarter: 2005Q4

REPORT INFORMATION
  Report Type: 
  Country: None (occurrence: None)
  Receive Date: 20051229
  Receipt Date: 20051221
  Transmission Date: 20060501
  Serious: Yes (Hospitalization)
  Sender: FDA-Public Use
  Company Number: 2005BI019850

PATIENT
  Age: 56 Year
  Sex: Female

DRUGS (11)
  1. AVONEX [Suspect]
     Indication: MULTIPLE SCLEROSIS
     Dosage: 30 UG;QW;IM
     Route: 030
     Dates: start: 20020405
  2. AVONEX [Suspect]
     Indication: MULTIPLE SCLEROSIS
     Dosage: 30 UG;QW;IM
     Route: 030
     Dates: end: 20050927
  3. CLONAZEPAM [Concomitant]
  4. STOOL SOFTENER [Concomitant]
  5. PREMARIN [Concomitant]
  6. TRICOR [Concomitant]
  7. NABUMETONE [Concomitant]
  8. TRAMADOL HCL [Concomitant]
  9. TRAZODONE HCL [Concomitant]
  10. EFFEXOR XR [Concomitant]
  11. OXYBUTYAN [Concomitant]

REACTIONS (5)
  - ABASIA [None]
  - ASTHENIA [None]
  - FATIGUE [None]
  - IMPAIRED DRIVING ABILITY [None]
  - SOMNOLENCE [None]
